FAERS Safety Report 5278051-7 (Version None)
Quarter: 2007Q1

REPORT INFORMATION
  Report Type: 
  Country: None (occurrence: None)
  Receive Date: 20070327
  Receipt Date: 20070321
  Transmission Date: 20070707
  Serious: Yes (Hospitalization)
  Sender: FDA-Public Use
  Company Number: AU-ELI_LILLY_AND_COMPANY-AU200703005124

PATIENT
  Age: 59 Year
  Sex: Female

DRUGS (9)
  1. GEMZAR [Suspect]
     Indication: LEIOMYOSARCOMA
     Dosage: 1200 MG, UNK
     Route: 042
     Dates: start: 20070301, end: 20070301
  2. TAXOTERE [Concomitant]
     Dosage: 120 MG, UNK
  3. DEXAMETHASONE [Concomitant]
     Dosage: 4 MG, UNK
     Dates: start: 20070301
  4. INDERAL [Concomitant]
  5. KEFLEX [Concomitant]
  6. DIAFORMIN [Concomitant]
  7. DIAMICRON [Concomitant]
  8. OGEN [Concomitant]
  9. DEPTRAN [Concomitant]

REACTIONS (3)
  - DYSPNOEA [None]
  - PAIN [None]
  - RASH [None]
